FAERS Safety Report 10025968 (Version 1)
Quarter: 2014Q1

REPORT INFORMATION
  Report Type: Spontaneous
  Country: FR (occurrence: None)
  Receive Date: 20140318
  Receipt Date: 20140318
  Transmission Date: 20141002
  Serious: Yes (Death)
  Sender: FDA-Public Use
  Company Number: 2014RT000021

PATIENT
  Age: 42 Year
  Sex: Male

DRUGS (1)
  1. CYSTEAMINE BITARTRATE [Suspect]
     Indication: HUNTINGTON^S DISEASE
     Route: 048
     Dates: start: 20110707, end: 20121205

REACTIONS (1)
  - Completed suicide [None]
